FAERS Safety Report 5000012-3 (Version None)
Quarter: 2006Q2

REPORT INFORMATION
  Report Type: 
  Country: None (occurrence: None)
  Receive Date: 20060510
  Receipt Date: 20060510
  Transmission Date: 20061013
  Serious: Yes (Life-Threatening, Hospitalization)
  Sender: FDA-Public Use
  Company Number: None

PATIENT
  Age: 29 Year
  Sex: Female

DRUGS (9)
  1. ENOXAPARIN SODIUM [Suspect]
     Indication: THROMBOSIS PROPHYLAXIS
     Dosage: 60 MG  SC Q12H
     Route: 058
     Dates: start: 20060127, end: 20060129
  2. ENOXAPARIN SODIUM [Suspect]
     Indication: THROMBOSIS PROPHYLAXIS
     Dosage: 60 MG  SC Q12H
     Route: 058
     Dates: start: 20060131
  3. SERTRALINE [Concomitant]
  4. LEVOFLOXACIN [Concomitant]
  5. METRONIDAZOLE [Concomitant]
  6. LORAZEPAM [Concomitant]
  7. HYDROMORPHONE HCL [Concomitant]
  8. OXYCODONE AND ACETAMINOPHEN [Concomitant]
  9. WARFARIN SODIUM [Concomitant]

REACTIONS (3)
  - DEEP VEIN THROMBOSIS [None]
  - DISEASE PROGRESSION [None]
  - INTERNATIONAL NORMALISED RATIO DECREASED [None]
